FAERS Safety Report 9179850 (Version 1)
Quarter: 2013Q1

REPORT INFORMATION
  Report Type: Spontaneous
  Country: BR (occurrence: BR)
  Receive Date: 20130321
  Receipt Date: 20130321
  Transmission Date: 20140127
  Serious: Yes (Other)
  Sender: FDA-Public Use
  Company Number: CHNY2013BR000803

PATIENT
  Age: 57 Year
  Sex: Female

DRUGS (4)
  1. CIBALENAA [Suspect]
     Indication: MIGRAINE
     Dosage: UNK UNK, PRN
     Route: 048
  2. OMEGA 3 [Concomitant]
     Indication: BLOOD CHOLESTEROL INCREASED
     Dosage: 500 MG, QD
     Route: 048
  3. OMEGA 3 [Concomitant]
     Indication: BLOOD TRIGLYCERIDES
  4. IRON W/VITAMINS NOS [Concomitant]
     Indication: ANAEMIA
     Dates: start: 2012, end: 2012

REACTIONS (7)
  - Uterine prolapse [Recovered/Resolved]
  - Anaemia [Unknown]
  - Dyslipidaemia [Unknown]
  - Amenorrhoea [Not Recovered/Not Resolved]
  - Migraine [Not Recovered/Not Resolved]
  - Fatigue [Unknown]
  - Somnolence [Unknown]
